FAERS Safety Report 6390479-0 (Version None)
Quarter: 2009Q4

REPORT INFORMATION
  Report Type: 
  Country: None (occurrence: None)
  Receive Date: 20091005
  Receipt Date: 20091005
  Transmission Date: 20100525
  Serious: Yes (Hospitalization)
  Sender: FDA-Public Use
  Company Number: None

PATIENT
  Age: 66 Year
  Sex: Male

DRUGS (1)
  1. SUCCINYLCHOLINE [Suspect]
     Indication: ANAESTHESIA
     Dosage: 200 MG ONCE IV
     Route: 042
     Dates: start: 20090720, end: 20090720

REACTIONS (2)
  - APNOEA [None]
  - SEDATION [None]
